FAERS Safety Report 12154845 (Version 1)
Quarter: 2016Q1

REPORT INFORMATION
  Report Type: Other
  Country: CA (occurrence: CA)
  Receive Date: 20160307
  Receipt Date: 20160307
  Transmission Date: 20160526
  Serious: Yes (Death, Life-Threatening, Other)
  Sender: FDA-Public Use
  Company Number: CA-APOTEX-2015AP012486

PATIENT
  Sex: Male
  Weight: 59 kg

DRUGS (2)
  1. APO-SALVENT INHALER [Suspect]
     Active Substance: ALBUTEROL
     Indication: CHRONIC OBSTRUCTIVE PULMONARY DISEASE
     Dosage: 2 DF, QID
     Route: 055
  2. SPIRIVA [Concomitant]
     Active Substance: TIOTROPIUM BROMIDE MONOHYDRATE
     Indication: PRODUCT USED FOR UNKNOWN INDICATION
     Route: 065

REACTIONS (5)
  - Therapeutic product ineffective [Fatal]
  - Product substitution issue [Fatal]
  - Weight decreased [Fatal]
  - Cerebrovascular accident [Fatal]
  - Deafness [Fatal]
